FAERS Safety Report 11878552 (Version 5)
Quarter: 2016Q1

REPORT INFORMATION
  Report Type: Report from Study
  Country: ES (occurrence: ES)
  Receive Date: 20151230
  Receipt Date: 20160204
  Transmission Date: 20160526
  Serious: Yes (Hospitalization)
  Sender: FDA-Public Use
  Company Number: ES-EISAI MEDICAL RESEARCH-EC-2015-013113

PATIENT
  Age: 8 Year
  Sex: Male
  Weight: 21.4 kg

DRUGS (10)
  1. CYCLOPHOSPHAMIDE. [Concomitant]
     Active Substance: CYCLOPHOSPHAMIDE
  2. LENVATINIB [Suspect]
     Active Substance: LENVATINIB
     Route: 048
     Dates: start: 20151226, end: 20151228
  3. ENOXAPARINE [Concomitant]
     Active Substance: ENOXAPARIN
  4. LENVATINIB [Suspect]
     Active Substance: LENVATINIB
     Indication: NEUROBLASTOMA RECURRENT
     Route: 048
     Dates: start: 20151214, end: 20151221
  5. LENVATINIB [Suspect]
     Active Substance: LENVATINIB
     Route: 048
     Dates: start: 20151222, end: 20151224
  6. PARACETAMOL [Concomitant]
     Active Substance: ACETAMINOPHEN
  7. IBUPROFEN. [Concomitant]
     Active Substance: IBUPROFEN
  8. TRIMETHOPRIM/SULFAMETHOXAOL [Concomitant]
  9. MACROGOL [Concomitant]
     Active Substance: POLYETHYLENE GLYCOLS
  10. METAMIZOL [Concomitant]
     Active Substance: METAMIZOLE SODIUM

REACTIONS (4)
  - Weight decreased [Recovered/Resolved]
  - Vomiting [Recovered/Resolved]
  - Hypertension [Recovered/Resolved]
  - Gait disturbance [Recovered/Resolved]

NARRATIVE: CASE EVENT DATE: 20151222
